APPROVED DRUG PRODUCT: ATENOLOL
Active Ingredient: ATENOLOL
Strength: 100MG
Dosage Form/Route: TABLET;ORAL
Application: A074126 | Product #002
Applicant: MYLAN PHARMACEUTICALS INC
Approved: Mar 23, 1994 | RLD: No | RS: No | Type: DISCN